FAERS Safety Report 17609481 (Version 3)
Quarter: 2021Q1

REPORT INFORMATION
  Report Type: Spontaneous
  Country: TW (occurrence: TW)
  Receive Date: 20200401
  Receipt Date: 20210112
  Transmission Date: 20210419
  Serious: Yes (Hospitalization)
  Sender: FDA-Public Use
  Company Number: TW-AMGEN-TWNSP2020051365

PATIENT
  Age: 61 Year
  Sex: Female

DRUGS (7)
  1. ENBREL [Suspect]
     Active Substance: ETANERCEPT
     Indication: RHEUMATOID ARTHRITIS
     Dosage: 25 MG, 2X/WEEK (BIW)
     Route: 058
     Dates: start: 20100104
  2. TRAMACET [Concomitant]
     Active Substance: ACETAMINOPHEN\TRAMADOL
     Dosage: 1 DF, 2X/DAY
  3. MOBIC [Concomitant]
     Active Substance: MELOXICAM
     Dosage: 1 DF, 2X/DAY
  4. SULFASALAZINE. [Concomitant]
     Active Substance: SULFASALAZINE
     Dosage: 1 DF, 2X/DAY
  5. ENBREL [Suspect]
     Active Substance: ETANERCEPT
     Dosage: 25 MG, Q6D
     Route: 058
     Dates: start: 20200414, end: 20201230
  6. ENBREL [Suspect]
     Active Substance: ETANERCEPT
     Dosage: 25 MG, Q4D
     Route: 058
     Dates: start: 20140210
  7. PREDNISOLONE. [Concomitant]
     Active Substance: PREDNISOLONE
     Dosage: 1 DF, 1X/DAY

REACTIONS (6)
  - Off label use [Unknown]
  - Neck pain [Recovering/Resolving]
  - Musculoskeletal pain [Unknown]
  - Paraesthesia [Unknown]
  - Arthralgia [Recovering/Resolving]
  - Pain [Recovering/Resolving]

NARRATIVE: CASE EVENT DATE: 20140210
